FAERS Safety Report 7914519-X (Version None)
Quarter: 2011Q4

REPORT INFORMATION
  Report Type: 
  Country: None (occurrence: None)
  Receive Date: 20111115
  Receipt Date: 20111102
  Transmission Date: 20120403
  Serious: Yes (Other)
  Sender: FDA-Public Use
  Company Number: PHHY2011JP097303

PATIENT
  Age: 30 Year
  Sex: Female

DRUGS (2)
  1. METHYLPREDNISOLONE [Concomitant]
     Route: 048
  2. CYCLOSPORINE [Suspect]
     Dosage: UNK
     Route: 048

REACTIONS (1)
  - POST TRANSPLANT DISTAL LIMB SYNDROME [None]
